FAERS Safety Report 9695084 (Version 1)
Quarter: 2013Q4

REPORT INFORMATION
  Report Type: Spontaneous
  Country: US (occurrence: US)
  Receive Date: 20131119
  Receipt Date: 20131119
  Transmission Date: 20140711
  Serious: Yes (Death, Other)
  Sender: FDA-Public Use
  Company Number: US-ROCHE-1301217

PATIENT
  Sex: Female

DRUGS (15)
  1. RITUXAN [Suspect]
     Indication: PRODUCT USED FOR UNKNOWN INDICATION
     Route: 065
  2. ACTEMRA [Suspect]
     Indication: PRODUCT USED FOR UNKNOWN INDICATION
     Route: 065
  3. ENBREL [Suspect]
     Indication: RHEUMATOID ARTHRITIS
     Route: 065
  4. XELJANZ [Suspect]
     Indication: RHEUMATOID ARTHRITIS
     Route: 048
     Dates: start: 20130429
  5. HUMIRA [Suspect]
     Indication: PRODUCT USED FOR UNKNOWN INDICATION
     Route: 065
  6. REMICADE [Suspect]
     Indication: PRODUCT USED FOR UNKNOWN INDICATION
     Route: 065
  7. ORENCIA [Suspect]
     Indication: PRODUCT USED FOR UNKNOWN INDICATION
     Route: 065
  8. PLAQUENIL [Concomitant]
  9. PREDNISONE [Concomitant]
  10. FLEXERIL (UNITED STATES) [Concomitant]
  11. IMURAN [Concomitant]
  12. XARELTO [Concomitant]
  13. REVATIO [Concomitant]
  14. LASIX [Concomitant]
  15. COUMADIN [Concomitant]

REACTIONS (36)
  - Death [Fatal]
  - Vulval cancer [Unknown]
  - Pulmonary hypertension [Unknown]
  - Atrial fibrillation [Unknown]
  - Renal failure chronic [Unknown]
  - Wheelchair user [Unknown]
  - Tendon rupture [Unknown]
  - Knee arthroplasty [Unknown]
  - Arthrodesis [Unknown]
  - Shoulder deformity [Unknown]
  - Elbow deformity [Unknown]
  - Wrist deformity [Unknown]
  - Joint contracture [Unknown]
  - Arthralgia [Unknown]
  - Pain [Unknown]
  - Red blood cell sedimentation rate increased [Unknown]
  - C-reactive protein increased [Unknown]
  - Musculoskeletal pain [Unknown]
  - Joint swelling [Unknown]
  - Myalgia [Unknown]
  - Dry mouth [Unknown]
  - Dysphoria [Unknown]
  - Contusion [Unknown]
  - Osteoporosis [Unknown]
  - Drug intolerance [Unknown]
  - Pain in extremity [Unknown]
  - Weight bearing difficulty [Unknown]
  - Dry skin [Unknown]
  - Hypersensitivity [Unknown]
  - Arthropathy [Unknown]
  - Joint range of motion decreased [Unknown]
  - Joint laxity [Unknown]
  - Oedema peripheral [Unknown]
  - Osteoarthritis [Unknown]
  - Obesity [Unknown]
  - Rheumatoid nodule [Unknown]
